FAERS Safety Report 8402389-5 (Version None)
Quarter: 2012Q2

REPORT INFORMATION
  Report Type: 
  Country: None (occurrence: None)
  Receive Date: 20120601
  Receipt Date: 20120523
  Transmission Date: 20120825
  Serious: Yes (Hospitalization)
  Sender: FDA-Public Use
  Company Number: CH-SANOFI-AVENTIS-2012SA037069

PATIENT
  Age: 80 Year
  Sex: Female

DRUGS (10)
  1. MARCOUMAR [Suspect]
     Route: 048
     Dates: end: 20120311
  2. DIAMICRON [Concomitant]
  3. CORDARONE [Concomitant]
     Route: 048
  4. LUDIOMIL [Concomitant]
  5. TENORMIN [Concomitant]
  6. ALDACTONE [Concomitant]
  7. SIMVASTATIN [Concomitant]
  8. CLONAZEPAM [Concomitant]
  9. CLOPIDOGREL BISULFATE [Suspect]
     Route: 048
  10. LASIX [Concomitant]

REACTIONS (3)
  - EPISTAXIS [None]
  - PROTHROMBIN TIME PROLONGED [None]
  - TOXICITY TO VARIOUS AGENTS [None]
